FAERS Safety Report 8757781 (Version 2)
Quarter: 2012Q4

REPORT INFORMATION
  Report Type: 
  Country: US (occurrence: US)
  Receive Date: 20120828
  Receipt Date: 20120828
  Transmission Date: 20130627
  Serious: Yes (Death, Other)
  Sender: FDA-Public Use
  Company Number: PHHY2012US064228

PATIENT
  Sex: Female

DRUGS (15)
  1. DOXORUBICIN [Suspect]
     Indication: ACUTE LYMPHOCYTIC LEUKAEMIA
     Dosage: 60 mg/m2, TIW
  2. DOXORUBICIN [Suspect]
     Dosage: 45 mg/m2, TIW
  3. FUROSEMIDE [Suspect]
     Indication: CARDIAC FAILURE
  4. FUROSEMIDE [Suspect]
     Indication: CARDIAC FAILURE
  5. FUROSEMIDE [Suspect]
     Indication: EJECTION FRACTION DECREASED
  6. DIGOXIN [Suspect]
     Indication: CARDIAC FAILURE
  7. DIGOXIN [Suspect]
     Indication: EJECTION FRACTION DECREASED
  8. VINCRISTINE [Concomitant]
     Indication: ACUTE LYMPHOCYTIC LEUKAEMIA
  9. PREDNISONE [Concomitant]
     Indication: ACUTE LYMPHOCYTIC LEUKAEMIA
  10. METHOTREXATE [Concomitant]
     Route: 037
  11. 6-MP [Concomitant]
  12. ASPARAGINASE [Concomitant]
  13. ENALAPRIL [Concomitant]
  14. VITAMIN D3 [Concomitant]
  15. IRON SUPPLEMENTS [Concomitant]
     Route: 042

REACTIONS (15)
  - Sudden cardiac death [Fatal]
  - Cardiac failure [Unknown]
  - Congestive cardiomyopathy [Unknown]
  - Cardiotoxicity [Unknown]
  - Dyspnoea [Unknown]
  - Viral upper respiratory tract infection [Unknown]
  - Respiratory disorder [Unknown]
  - Atrial fibrillation [Unknown]
  - Ejection fraction decreased [Unknown]
  - Therapeutic response decreased [Unknown]
  - Vitamin D deficiency [None]
  - Iron deficiency anaemia [None]
  - Type 2 diabetes mellitus [None]
  - Migraine [None]
  - Amenorrhoea [None]
